FAERS Safety Report 18548683 (Version 4)
Quarter: 2021Q2

REPORT INFORMATION
  Report Type: Report from Study
  Country: None (occurrence: NL)
  Receive Date: 20201125
  Receipt Date: 20210616
  Transmission Date: 20210717
  Serious: Yes (Hospitalization)
  Sender: FDA-Public Use
  Company Number: NL-ABBVIE-18K-114-2319052-00

PATIENT
  Sex: Male

DRUGS (16)
  1. DUODOPA [Suspect]
     Active Substance: CARBIDOPA\LEVODOPA
     Dosage: MD 11.0;CD 2.1;ED 2.0
     Route: 050
  2. DUODOPA [Suspect]
     Active Substance: CARBIDOPA\LEVODOPA
     Dosage: MD 11.0, CD 1.9, ED 2.0
     Route: 050
  3. DUODOPA [Suspect]
     Active Substance: CARBIDOPA\LEVODOPA
     Dosage: MD 11.0 ML, CD 2.2 ML/H, ED 2.0 ML.
     Route: 050
  4. ACENOCOUMAROL [Concomitant]
     Active Substance: ACENOCOUMAROL
     Indication: PRODUCT USED FOR UNKNOWN INDICATION
     Dates: end: 20180407
  5. DUODOPA [Suspect]
     Active Substance: CARBIDOPA\LEVODOPA
     Dosage: MD:9.0 ML CD:0.1 ML ED:1
     Route: 050
     Dates: start: 2018, end: 2018
  6. DUODOPA [Suspect]
     Active Substance: CARBIDOPA\LEVODOPA
     Dosage: MD: 10 ML; CD: 2.1 ML/HR; ED: 2ML
     Route: 050
     Dates: start: 2018, end: 2018
  7. DUODOPA [Suspect]
     Active Substance: CARBIDOPA\LEVODOPA
     Dosage: MD: 11.0, CD: 2.0, ED: 2.0 16 HOUR ADMINISTRATION
     Route: 050
     Dates: start: 20180410
  8. DUODOPA [Suspect]
     Active Substance: CARBIDOPA\LEVODOPA
     Dosage: MD 11.0, CD 1.9, ED 2.0
     Route: 050
  9. FUCIDINE [Concomitant]
     Indication: PRODUCT USED FOR UNKNOWN INDICATION
     Dosage: INSERTION SITE
  10. DUODOPA [Suspect]
     Active Substance: CARBIDOPA\LEVODOPA
     Dosage: MD:8.5 CD:0.1 ML ED:1
     Route: 050
     Dates: start: 2018, end: 2018
  11. DUODOPA [Suspect]
     Active Substance: CARBIDOPA\LEVODOPA
     Dosage: MD:5.5 CD:0.1 ML ED:1
     Route: 050
     Dates: start: 2018, end: 2018
  12. MACROGOL [Concomitant]
     Active Substance: POLYETHYLENE GLYCOLS
     Indication: ABNORMAL FAECES
     Route: 065
  13. DUODOPA [Suspect]
     Active Substance: CARBIDOPA\LEVODOPA
     Indication: PARKINSON^S DISEASE
     Dosage: MD: 5.5 CD: 2.0ML, ED: 1
     Route: 050
     Dates: start: 20180326, end: 2018
  14. LEVODOPA/CARBIDOPA RET [Concomitant]
     Indication: PRODUCT USED FOR UNKNOWN INDICATION
     Dosage: BEFORE SLEEP
  15. DUODOPA [Suspect]
     Active Substance: CARBIDOPA\LEVODOPA
     Dosage: MD: 11.0 ML, CD: 2.1 ML/H, ED: 2.0 ML
     Route: 050
  16. TERRACORTRIL [Concomitant]
     Indication: PRODUCT USED FOR UNKNOWN INDICATION
     Dosage: INSERTION SITE

REACTIONS (48)
  - Infection [Unknown]
  - Speech disorder [Not Recovered/Not Resolved]
  - General physical health deterioration [Not Recovered/Not Resolved]
  - Drug ineffective [Not Recovered/Not Resolved]
  - Underdose [Not Recovered/Not Resolved]
  - Dyspnoea [Recovering/Resolving]
  - Chest discomfort [Unknown]
  - Muscular weakness [Not Recovered/Not Resolved]
  - Wheelchair user [Not Recovered/Not Resolved]
  - Mobility decreased [Not Recovered/Not Resolved]
  - Patient dissatisfaction with device [Not Recovered/Not Resolved]
  - Fatigue [Not Recovered/Not Resolved]
  - Dyskinesia [Recovering/Resolving]
  - Therapeutic product effect variable [Not Recovered/Not Resolved]
  - Tension [Not Recovered/Not Resolved]
  - Speech disorder [Not Recovered/Not Resolved]
  - Wheelchair user [Unknown]
  - Tremor [Not Recovered/Not Resolved]
  - Extra dose administered [Recovered/Resolved]
  - Dysphonia [Not Recovered/Not Resolved]
  - Abnormal dreams [Recovered/Resolved]
  - Abnormal dreams [Not Recovered/Not Resolved]
  - Parkinsonism [Not Recovered/Not Resolved]
  - Nocturia [Recovering/Resolving]
  - Gait disturbance [Recovered/Resolved]
  - Weight increased [Recovered/Resolved]
  - Dyskinesia [Recovered/Resolved]
  - Middle insomnia [Not Recovered/Not Resolved]
  - Hallucination [Not Recovered/Not Resolved]
  - Stress [Not Recovered/Not Resolved]
  - Dysgraphia [Not Recovered/Not Resolved]
  - Faeces hard [Recovering/Resolving]
  - Middle insomnia [Recovered/Resolved]
  - Freezing phenomenon [Not Recovered/Not Resolved]
  - Hallucination [Recovered/Resolved]
  - On and off phenomenon [Not Recovered/Not Resolved]
  - Loss of personal independence in daily activities [Unknown]
  - Memory impairment [Not Recovered/Not Resolved]
  - Gait disturbance [Not Recovered/Not Resolved]
  - Feeling abnormal [Recovered/Resolved]
  - On and off phenomenon [Recovered/Resolved]
  - Therapeutic product effect incomplete [Not Recovered/Not Resolved]
  - Middle insomnia [Recovering/Resolving]
  - Reduced facial expression [Not Recovered/Not Resolved]
  - Medical device implantation [Unknown]
  - Muscle rigidity [Not Recovered/Not Resolved]
  - Dyschezia [Not Recovered/Not Resolved]
  - Restlessness [Not Recovered/Not Resolved]

NARRATIVE: CASE EVENT DATE: 2018
